FAERS Safety Report 13583419 (Version 1)
Quarter: 2017Q2

REPORT INFORMATION
  Report Type: Spontaneous
  Country: RU (occurrence: RU)
  Receive Date: 20170526
  Receipt Date: 20170526
  Transmission Date: 20170830
  Serious: Yes (Other)
  Sender: FDA-Public Use
  Company Number: RU-009507513-1705RUS012398

PATIENT

DRUGS (1)
  1. SINGULAIR [Suspect]
     Active Substance: MONTELUKAST SODIUM
     Indication: FEBRILE CONVULSION
     Route: 048

REACTIONS (4)
  - Seizure [Unknown]
  - Rhinitis allergic [Unknown]
  - Product use in unapproved indication [Unknown]
  - Adenoiditis [Unknown]
